FAERS Safety Report 12305787 (Version 1)
Quarter: 2016Q2

REPORT INFORMATION
  Report Type: Spontaneous
  Country: GB (occurrence: GB)
  Receive Date: 20160426
  Receipt Date: 20160426
  Transmission Date: 20160815
  Serious: Yes (Hospitalization)
  Sender: FDA-Public Use
  Company Number: GB-MYLANLABS-2016M1017162

PATIENT

DRUGS (2)
  1. OXYMETHOLONE [Suspect]
     Active Substance: OXYMETHOLONE
     Indication: PRODUCT USED FOR UNKNOWN INDICATION
     Route: 065
  2. TESTOSTERONE. [Suspect]
     Active Substance: TESTOSTERONE
     Indication: PRODUCT USED FOR UNKNOWN INDICATION
     Route: 065

REACTIONS (4)
  - Cerebellar infarction [Unknown]
  - Polycythaemia [Recovered/Resolved]
  - Drug abuse [Unknown]
  - Deafness neurosensory [Not Recovered/Not Resolved]
